FAERS Safety Report 8093222-2 (Version None)
Quarter: 2012Q1

REPORT INFORMATION
  Report Type: 
  Country: None (occurrence: None)
  Receive Date: 20120128
  Receipt Date: 20110909
  Transmission Date: 20120608
  Serious: No
  Sender: FDA-Public Use
  Company Number: US-ABBOTT-11P-163-0718149-00

PATIENT
  Sex: Female
  Weight: 64.922 kg

DRUGS (6)
  1. INDOMETHACINE [Concomitant]
     Indication: ANKYLOSING SPONDYLITIS
     Dates: start: 20101101
  2. HUMIRA [Suspect]
     Route: 058
     Dates: start: 20101101
  3. HUMIRA [Suspect]
     Indication: ANKYLOSING SPONDYLITIS
     Route: 058
     Dates: start: 20100501, end: 20101101
  4. INDOMETHACINE [Concomitant]
     Indication: INFLAMMATION
  5. VITAMIN TAB [Concomitant]
     Indication: VITAMIN SUPPLEMENTATION
  6. ACYCLOVIR [Concomitant]
     Indication: GENITAL HERPES

REACTIONS (18)
  - DECREASED APPETITE [None]
  - ARTHRALGIA [None]
  - WRONG TECHNIQUE IN DRUG USAGE PROCESS [None]
  - MUSCLE SPASMS [None]
  - NAUSEA [None]
  - PAIN [None]
  - ABDOMINAL PAIN [None]
  - CHEST PAIN [None]
  - INCORRECT DOSE ADMINISTERED [None]
  - DIARRHOEA [None]
  - EYE IRRITATION [None]
  - INJECTION SITE REACTION [None]
  - HEADACHE [None]
  - MYALGIA [None]
  - ASTHENIA [None]
  - FATIGUE [None]
  - PYREXIA [None]
  - CHEST DISCOMFORT [None]
